FAERS Safety Report 23055537 (Version 1)
Quarter: 2023Q4

REPORT INFORMATION
  Report Type: Spontaneous
  Country: CN (occurrence: None)
  Receive Date: 20231011
  Receipt Date: 20231011
  Transmission Date: 20240109
  Serious: Yes (Other)
  Sender: FDA-Public Use
  Company Number: 2023A229212

PATIENT
  Age: 81 Year
  Sex: Female
  Weight: 35 kg

DRUGS (10)
  1. BRICANYL [Suspect]
     Active Substance: TERBUTALINE SULFATE
     Indication: Chronic obstructive pulmonary disease
     Route: 055
     Dates: start: 20231002, end: 20231002
  2. PULMICORT RESPULES [Suspect]
     Active Substance: BUDESONIDE
     Indication: Chronic obstructive pulmonary disease
     Route: 055
     Dates: start: 20231002, end: 20231002
  3. AMINOPHYLLINE [Concomitant]
     Active Substance: AMINOPHYLLINE
     Indication: Chronic obstructive pulmonary disease
     Route: 041
     Dates: start: 20231002, end: 20231003
  4. SODIUM CHLORIDE [Concomitant]
     Active Substance: SODIUM CHLORIDE
     Indication: Ill-defined disorder
     Route: 041
     Dates: start: 20231002, end: 20231003
  5. CEFUROXIME SODIUM [Concomitant]
     Active Substance: CEFUROXIME SODIUM
     Indication: Chronic obstructive pulmonary disease
     Route: 041
     Dates: start: 20231002, end: 20231003
  6. VITAMIN B6 [Concomitant]
     Active Substance: PYRIDOXINE HYDROCHLORIDE
     Indication: Gastrointestinal disorder
     Route: 041
     Dates: start: 20231002, end: 20231003
  7. VITAMIN C [Concomitant]
     Active Substance: ASCORBIC ACID
     Indication: Gastrointestinal disorder
     Route: 041
     Dates: start: 20231002, end: 20231003
  8. DEXTROSE [Concomitant]
     Active Substance: DEXTROSE\DEXTROSE MONOHYDRATE
     Indication: Ill-defined disorder
     Route: 041
     Dates: start: 20231002, end: 20231003
  9. DEXTROSE [Concomitant]
     Active Substance: DEXTROSE\DEXTROSE MONOHYDRATE
     Indication: Ill-defined disorder
     Route: 041
     Dates: start: 20231002, end: 20231003
  10. DEXTROSE [Concomitant]
     Active Substance: DEXTROSE\DEXTROSE MONOHYDRATE
     Indication: Ill-defined disorder
     Route: 041
     Dates: start: 20231002, end: 20231003

REACTIONS (2)
  - Palpitations [Recovered/Resolved]
  - Nausea [Recovered/Resolved]

NARRATIVE: CASE EVENT DATE: 20231002
